FAERS Safety Report 8252935-X (Version None)
Quarter: 2012Q2

REPORT INFORMATION
  Report Type: 
  Country: None (occurrence: None)
  Receive Date: 20120402
  Receipt Date: 20120214
  Transmission Date: 20120825
  Serious: No
  Sender: FDA-Public Use
  Company Number: US-ABBOTT-12P-163-0905311-00

PATIENT
  Sex: Male
  Weight: 81.72 kg

DRUGS (8)
  1. ANDROGEL [Suspect]
     Dates: start: 20120101
  2. ANDROGEL [Suspect]
     Indication: BLOOD TESTOSTERONE DECREASED
     Dates: start: 20100101, end: 20111101
  3. LISINOPRIL [Concomitant]
     Indication: BLOOD PRESSURE
  4. NIASPAN [Concomitant]
     Indication: BLOOD CHOLESTEROL
  5. ASACOL [Concomitant]
     Indication: COLITIS
  6. HYTRIN [Concomitant]
     Indication: PROSTATIC DISORDER
  7. LIPITOR [Concomitant]
     Indication: BLOOD CHOLESTEROL
  8. ANDROGEL [Suspect]
     Dates: start: 20111101, end: 20120101

REACTIONS (2)
  - DRUG INEFFECTIVE [None]
  - ERECTILE DYSFUNCTION [None]
